FAERS Safety Report 9802757 (Version 1)
Quarter: 2014Q1

REPORT INFORMATION
  Report Type: Spontaneous
  Country: SI (occurrence: SI)
  Receive Date: 20140108
  Receipt Date: 20140108
  Transmission Date: 20141002
  Serious: Yes (Death)
  Sender: FDA-Public Use
  Company Number: SI-ROCHE-1328332

PATIENT
  Sex: Male

DRUGS (4)
  1. AVASTIN [Suspect]
     Indication: MALIGNANT MELANOMA
     Route: 065
  2. FOLINIC ACID [Suspect]
     Indication: MALIGNANT MELANOMA
     Route: 065
  3. FLUOROURACIL [Suspect]
     Indication: MALIGNANT MELANOMA
     Route: 065
  4. IRINOTECAN [Suspect]
     Indication: MALIGNANT MELANOMA
     Route: 065

REACTIONS (1)
  - General physical health deterioration [Fatal]
